FAERS Safety Report 9282152 (Version 1)
Quarter: 2013Q2

REPORT INFORMATION
  Report Type: Spontaneous
  Country: US (occurrence: None)
  Receive Date: 20130508
  Receipt Date: 20130508
  Transmission Date: 20140414
  Serious: Yes (Hospitalization)
  Sender: FDA-Public Use
  Company Number: None

PATIENT
  Age: 59 Year
  Sex: Male
  Weight: 81 kg

DRUGS (19)
  1. MYCOPHENOLATE MOFETIL [Suspect]
     Indication: PROPHYLAXIS
     Dosage: Q12
     Route: 048
     Dates: start: 20110305, end: 20110316
  2. AMLODIPINE [Concomitant]
  3. ASPIRIN [Concomitant]
  4. LUMIGAN [Concomitant]
  5. CARVEDILOL [Concomitant]
  6. DOCUSATE [Concomitant]
  7. INSULIN ASPARATE [Concomitant]
  8. MULTIVITAMIN [Concomitant]
  9. NYSTATIN [Concomitant]
  10. OXYCODONE/ACETAMINOPHEN [Concomitant]
  11. POLY ETHYLENE GLYCOL [Concomitant]
  12. PRAVASTATIN [Concomitant]
  13. PREDNISONE [Concomitant]
  14. RANITIDINE [Concomitant]
  15. BACTRIM [Concomitant]
  16. TACROLIMUS [Concomitant]
  17. SILDENAFIL [Concomitant]
  18. INSULIN GLARGINE [Concomitant]
  19. DALGANCICLOVIR [Concomitant]

REACTIONS (4)
  - Nausea [None]
  - Abdominal pain [None]
  - Feeling abnormal [None]
  - Decreased appetite [None]
